FAERS Safety Report 7897356-4 (Version None)
Quarter: 2011Q4

REPORT INFORMATION
  Report Type: 
  Country: None (occurrence: None)
  Receive Date: 20111107
  Receipt Date: 20111103
  Transmission Date: 20120403
  Serious: Yes (Hospitalization)
  Sender: FDA-Public Use
  Company Number: PHHY2011AT81982

PATIENT
  Age: 76 Year
  Sex: Female
  Weight: 76 kg

DRUGS (6)
  1. LEVOTHYROXINE SODIUM [Concomitant]
     Dosage: 75 MG
     Route: 048
  2. SIMVASTATIN [Concomitant]
     Dosage: 40 MG, UNK
     Route: 048
  3. ZOLEDRONOC ACID [Suspect]
     Indication: OSTEOPOROSIS
     Dosage: UNK UKN, UNK
     Route: 042
     Dates: start: 20110729
  4. ENALAPRIL MALEATE [Concomitant]
     Dosage: 5 MG
     Route: 048
  5. TRAMADOL HYDROCHLORIDE [Concomitant]
     Dosage: 50 MG, UNK
     Route: 048
  6. CARVEDILOL [Concomitant]
     Dosage: 12.5 MG, UNK
     Route: 048

REACTIONS (7)
  - INFLUENZA [None]
  - NONSPECIFIC REACTION [None]
  - DISTURBANCE IN ATTENTION [None]
  - DYSAESTHESIA [None]
  - VISUAL IMPAIRMENT [None]
  - ARTHRALGIA [None]
  - MYALGIA [None]
